FAERS Safety Report 6696310-8 (Version None)
Quarter: 2010Q2

REPORT INFORMATION
  Report Type: 
  Country: None (occurrence: None)
  Receive Date: 20100426
  Receipt Date: 20100414
  Transmission Date: 20101027
  Serious: Yes (Hospitalization)
  Sender: FDA-Public Use
  Company Number: US-JNJFOC-20100405100

PATIENT
  Age: 63 Year
  Sex: Female
  Weight: 72.58 kg

DRUGS (19)
  1. ACETAMINOPHEN [Suspect]
     Route: 048
  2. ACETAMINOPHEN [Suspect]
     Indication: ANALGESIC THERAPY
     Route: 048
  3. BEVACIZUMAB [Suspect]
     Indication: COLORECTAL CANCER
     Route: 042
  4. OXALIPLATIN [Suspect]
     Indication: COLORECTAL CANCER
     Route: 042
  5. FLUOROURACIL [Suspect]
     Indication: COLORECTAL CANCER
     Route: 042
  6. FLUOROURACIL [Suspect]
     Route: 042
  7. CALCIUM FOLINATE [Suspect]
     Indication: COLORECTAL CANCER
     Route: 042
  8. MORPHINE [Concomitant]
     Indication: CHEST PAIN
  9. NITROGLYCERIN [Concomitant]
     Indication: CHEST PAIN
  10. LORAZEPAM [Concomitant]
     Indication: ANXIETY
  11. LORAZEPAM [Concomitant]
     Indication: NAUSEA
  12. PROCHLORPERAZINE [Concomitant]
     Indication: VOMITING
  13. PROCHLORPERAZINE [Concomitant]
     Indication: NAUSEA
  14. POTASSIUM CHLORIDE [Concomitant]
     Indication: HYPOKALAEMIA
  15. POTASSIUM CHLORIDE [Concomitant]
  16. HYDROCHLOROTHIAZIDE [Concomitant]
     Indication: HYPERTENSION
  17. LISINOPRIL [Concomitant]
     Indication: CHEST PAIN
  18. MEGACE [Concomitant]
     Indication: DECREASED APPETITE
  19. ASPIRIN [Concomitant]

REACTIONS (2)
  - DEHYDRATION [None]
  - DYSPNOEA [None]
